FAERS Safety Report 8783677 (Version 1)
Quarter: 2012Q4

REPORT INFORMATION
  Report Type: Report from Study
  Country: US (occurrence: US)
  Receive Date: 20120913
  Receipt Date: 20120913
  Transmission Date: 20130627
  Serious: No
  Sender: FDA-Public Use
  Company Number: US-VERTEX PHARMACEUTICAL INC.-AE-2012-008511

PATIENT
  Age: 63 Year
  Sex: Male
  Weight: 90.91 kg

DRUGS (7)
  1. INCIVEK [Suspect]
     Indication: HEPATITIS C
     Route: 048
  2. PEGASYS [Concomitant]
     Indication: HEPATITIS C
     Route: 058
  3. RIBAVIRIN [Concomitant]
     Indication: HEPATITIS C
     Route: 048
  4. OMEPRAZOLE [Concomitant]
     Route: 048
  5. LISINOPRIL [Concomitant]
     Route: 048
  6. METHADONE [Concomitant]
     Route: 048
  7. PROCRIT [Concomitant]
     Route: 058

REACTIONS (4)
  - Tremor [Unknown]
  - Fatigue [Unknown]
  - Anaemia [Unknown]
  - Pruritus [Unknown]
